FAERS Safety Report 24333353 (Version 2)
Quarter: 2024Q4

REPORT INFORMATION
  Report Type: Spontaneous
  Country: DE (occurrence: DE)
  Receive Date: 20240918
  Receipt Date: 20241001
  Transmission Date: 20250115
  Serious: Yes (Other)
  Sender: SANDOZ
  Company Number: DE-BRISTOL-MYERS SQUIBB COMPANY-BMS-2020-009234

PATIENT
  Age: 78 Year
  Sex: Female

DRUGS (14)
  1. BISOPROLOL FUMARATE [Suspect]
     Active Substance: BISOPROLOL FUMARATE
     Indication: Product used for unknown indication
     Dosage: 1 DF, QD (1-0-0-0)
     Route: 065
  2. BISOPROLOL FUMARATE [Suspect]
     Active Substance: BISOPROLOL FUMARATE
     Dosage: UNK 1-0-0-0
     Route: 065
  3. ELIQUIS [Suspect]
     Active Substance: APIXABAN
     Indication: Product used for unknown indication
     Dosage: 2 DF, QD
     Route: 065
  4. ISOSORBIDE DINITRATE [Suspect]
     Active Substance: ISOSORBIDE DINITRATE
     Indication: Product used for unknown indication
     Dosage: UNK
     Route: 065
  5. ISOSORBIDE DINITRATE [Suspect]
     Active Substance: ISOSORBIDE DINITRATE
     Dosage: UNK
     Route: 065
  6. ISOSORBIDE DINITRATE [Suspect]
     Active Substance: ISOSORBIDE DINITRATE
     Dosage: UNK
     Route: 065
  7. METFORMIN HYDROCHLORIDE [Suspect]
     Active Substance: METFORMIN HYDROCHLORIDE
     Indication: Product used for unknown indication
     Dosage: UNK
     Route: 065
  8. METFORMIN HYDROCHLORIDE [Suspect]
     Active Substance: METFORMIN HYDROCHLORIDE
     Dosage: UNK
     Route: 065
  9. SPIRONOLACTONE [Suspect]
     Active Substance: SPIRONOLACTONE
     Dosage: UNK HALF-0-0-
     Route: 065
  10. SPIRONOLACTONE [Suspect]
     Active Substance: SPIRONOLACTONE
     Indication: Product used for unknown indication
     Dosage: 0.5 DF, QD (0.5-0-0-)
     Route: 065
  11. SPIRONOLACTONE [Suspect]
     Active Substance: SPIRONOLACTONE
     Dosage: UNK HALF-0-0-
     Route: 065
  12. TORSEMIDE [Suspect]
     Active Substance: TORSEMIDE
     Indication: Product used for unknown indication
     Dosage: 0.5 DF, QD (0.5-0-0-0)
     Route: 065
  13. TORSEMIDE [Suspect]
     Active Substance: TORSEMIDE
     Dosage: UNK HALF-0-0-0
     Route: 065
  14. TORSEMIDE [Suspect]
     Active Substance: TORSEMIDE
     Dosage: UNK HALF-0-0-0
     Route: 065

REACTIONS (10)
  - Haemoglobin decreased [Unknown]
  - Red cell distribution width abnormal [Unknown]
  - Renal impairment [Unknown]
  - Blood creatinine increased [Unknown]
  - Blood glucose abnormal [Unknown]
  - Haematocrit abnormal [Unknown]
  - Glomerular filtration rate abnormal [Unknown]
  - Glycosylated haemoglobin increased [Unknown]
  - Blood pressure abnormal [Unknown]
  - Gamma-glutamyltransferase abnormal [Unknown]
